FAERS Safety Report 7674338-9 (Version None)
Quarter: 2011Q3

REPORT INFORMATION
  Report Type: 
  Country: None (occurrence: None)
  Receive Date: 20110810
  Receipt Date: 20090331
  Transmission Date: 20111222
  Serious: Yes (Other)
  Sender: FDA-Public Use
  Company Number: US-BAYER-200914960NA

PATIENT
  Age: 72 Year
  Sex: Male
  Weight: 97.052 kg

DRUGS (18)
  1. OMNISCAN [Suspect]
     Dosage: 20 ML, ONCE
     Dates: start: 20060414, end: 20060414
  2. GADOLINIUM IN UNSPECIFIED DRUG [Suspect]
     Indication: NUCLEAR MAGNETIC RESONANCE IMAGING
     Dosage: UNK UNK, ONCE
     Dates: start: 20010523, end: 20010523
  3. CALCITRIOL [Concomitant]
  4. PIROXICAM [Concomitant]
  5. GLUCOSAMINE [Concomitant]
  6. NEPHROCAPS [Concomitant]
  7. MIDODRINE HYDROCHLORIDE [Concomitant]
  8. MAGNEVIST [Suspect]
     Indication: PRODUCT USED FOR UNKNOWN INDICATION
     Dosage: UNK, ONCE
     Dates: start: 20050804, end: 20050804
  9. MAGNEVIST [Suspect]
  10. MULTIHANCE [Suspect]
     Indication: PRODUCT USED FOR UNKNOWN INDICATION
  11. OMNISCAN [Suspect]
     Indication: PRODUCT USED FOR UNKNOWN INDICATION
     Dosage: UNK UNK, ONCE
     Dates: start: 20041206, end: 20041206
  12. PROCRIT [Concomitant]
  13. RENAGEL [Concomitant]
  14. FLUDROCORTISONE ACETATE [Concomitant]
  15. OPTIMARK [Suspect]
     Indication: PRODUCT USED FOR UNKNOWN INDICATION
  16. VYTORIN [Concomitant]
  17. PROHANCE [Suspect]
     Indication: PRODUCT USED FOR UNKNOWN INDICATION
  18. SENSIPAR [Concomitant]

REACTIONS (10)
  - GENERAL PHYSICAL HEALTH DETERIORATION [None]
  - FIBROSIS [None]
  - ANHEDONIA [None]
  - DEPRESSION [None]
  - NEPHROGENIC SYSTEMIC FIBROSIS [None]
  - EMOTIONAL DISTRESS [None]
  - MOBILITY DECREASED [None]
  - ANGER [None]
  - PAIN [None]
  - ANXIETY [None]
